FAERS Safety Report 24312906 (Version 2)
Quarter: 2024Q4

REPORT INFORMATION
  Report Type: Spontaneous
  Country: CA (occurrence: CA)
  Receive Date: 20240912
  Receipt Date: 20241003
  Transmission Date: 20250114
  Serious: Yes (Other)
  Sender: AMERICAN REGENT
  Company Number: CA-AMERICAN REGENT INC-2024003479

PATIENT
  Age: 44 Year
  Sex: Female

DRUGS (1)
  1. VENOFER [Suspect]
     Active Substance: IRON SUCROSE
     Indication: Product used for unknown indication
     Dosage: UNK, SINGLE
     Dates: start: 20240506, end: 20240506

REACTIONS (7)
  - Tremor [Unknown]
  - Palpitations [Unknown]
  - Rash pruritic [Unknown]
  - Urticaria [Unknown]
  - Dyspnoea [Unknown]
  - Peripheral swelling [Unknown]
  - Incorrect product administration duration [Unknown]

NARRATIVE: CASE EVENT DATE: 20240506
